FAERS Safety Report 18192662 (Version 6)
Quarter: 2021Q4

REPORT INFORMATION
  Report Type: Report from Study
  Country: IT (occurrence: None)
  Receive Date: 20200825
  Receipt Date: 20211227
  Transmission Date: 20220303
  Serious: Yes (Disabling, Other)
  Sender: FDA-Public Use
  Company Number: 2020SF06238

PATIENT
  Age: 177 Month
  Sex: Female
  Weight: 40 kg

DRUGS (2)
  1. SELUMETINIB [Suspect]
     Active Substance: SELUMETINIB
     Indication: Neurofibromatosis
     Dosage: BSA ADJUSTED
     Route: 048
     Dates: start: 20200617, end: 20211031
  2. AMOXICILLINE-CLAVULANATE [Concomitant]
     Route: 065
     Dates: start: 20200816

REACTIONS (7)
  - Acne [Unknown]
  - Folliculitis [Unknown]
  - Paronychia [Unknown]
  - Dry skin [Unknown]
  - Skin infection [Unknown]
  - Treatment noncompliance [Unknown]
  - Skin disorder [Unknown]

NARRATIVE: CASE EVENT DATE: 20200701
